FAERS Safety Report 5603289-6 (Version None)
Quarter: 2008Q1

REPORT INFORMATION
  Report Type: 
  Country: None (occurrence: None)
  Receive Date: 20080122
  Receipt Date: 20080111
  Transmission Date: 20080703
  Serious: Yes (Hospitalization)
  Sender: FDA-Public Use
  Company Number: E2020-02119-SPO-FR

PATIENT
  Age: 86 Year
  Sex: Female

DRUGS (12)
  1. ARICEPT [Suspect]
     Indication: DEMENTIA ALZHEIMER'S TYPE
     Dosage: 10 MG, 1 IN 1 D, ORAL
     Route: 048
     Dates: end: 20070829
  2. OXACILLIN [Suspect]
     Indication: ERYSIPELAS
     Dosage: ORAL
     Route: 048
     Dates: start: 20070825, end: 20070828
  3. ZALDIAR (TRAMADOL/PARACETAMOL) [Suspect]
     Indication: PAIN
     Dosage: ORAL
     Route: 048
     Dates: start: 20070802, end: 20070825
  4. HYTACAND (BLOPRESS PLUS) [Suspect]
     Indication: HYPERTENSION
     Dosage: 12.5MG/16MG, ORAL
     Route: 048
     Dates: end: 20070826
  5. ORBENIN CAP [Suspect]
     Indication: INFECTION
     Dosage: 2 GM, ORAL
     Route: 048
     Dates: start: 20070820, end: 20070824
  6. LOVENOX [Suspect]
     Indication: PROPHYLAXIS
     Dosage: SUBCUTANEOUS
     Route: 058
     Dates: start: 20070825, end: 20070827
  7. ASPEGIC 1000 [Concomitant]
  8. LEVOTHYROXINE SODIUM [Concomitant]
  9. ATHYMIL (MIANSERIN HYDROCHLORIDE) [Concomitant]
  10. NOLVADEX [Concomitant]
  11. CETIRIZINE HCL [Concomitant]
  12. ATACAND [Concomitant]

REACTIONS (3)
  - ERYSIPELAS [None]
  - NEPHRITIS [None]
  - WOUND INFECTION [None]
